FAERS Safety Report 8866982 (Version 1)
Quarter: 2012Q4

REPORT INFORMATION
  Report Type: 
  Country: US (occurrence: US)
  Receive Date: 20121025
  Receipt Date: 20121025
  Transmission Date: 20130627
  Serious: Yes (Other)
  Sender: FDA-Public Use
  Company Number: US-AMGEN-USASP2012013937

PATIENT
  Sex: Male
  Weight: 133.7 kg

DRUGS (7)
  1. ENBREL [Suspect]
     Indication: PRODUCT USED FOR UNKNOWN INDICATION
     Dosage: 50 mg, qwk
     Route: 058
  2. VITAMIN C                          /00008001/ [Concomitant]
     Dosage: 250 mg, UNK
  3. ALLOPURINOL [Concomitant]
     Dosage: 100 mg, UNK
  4. MULTIVITAMIN                       /00097801/ [Concomitant]
     Dosage: UNK
  5. FISH OIL [Concomitant]
     Dosage: UNK
  6. AZOR                               /00595201/ [Concomitant]
     Dosage: UNK
  7. B12                                /00056201/ [Concomitant]
     Dosage: 1 mg, UNK

REACTIONS (1)
  - Mycobacterium tuberculosis complex test positive [Unknown]
